FAERS Safety Report 4412873-7 (Version None)
Quarter: 2004Q3

REPORT INFORMATION
  Report Type: 
  Country: None (occurrence: None)
  Receive Date: 20040727
  Receipt Date: 20040712
  Transmission Date: 20050211
  Serious: Yes (Death, Disabling)
  Sender: FDA-Public Use
  Company Number: USA-2003-0005189

PATIENT
  Age: 38 Year
  Sex: Male
  Weight: 90.7 kg

DRUGS (9)
  1. OXYCONTIN [Suspect]
     Indication: PAIN
     Dosage: 80 MG, BID
  2. TEGRETOL [Suspect]
     Dosage: SEE IMAGE
  3. NEURONTIN [Concomitant]
  4. ELAVIL [Concomitant]
  5. AMBIEN [Concomitant]
  6. CELEBREX (CITALOPRAM HYDROBROMIDE) [Concomitant]
  7. PRILOSEC [Concomitant]
  8. TRILEPTAL [Concomitant]
  9. ZANAFLEX [Concomitant]

REACTIONS (27)
  - ABDOMINAL ADHESIONS [None]
  - ACCIDENT [None]
  - ANXIETY [None]
  - ARRHYTHMIA [None]
  - ASTHENIA [None]
  - BONE GRAFT [None]
  - CONSTIPATION [None]
  - CONVERSION DISORDER [None]
  - DEPRESSION [None]
  - DIPLOPIA [None]
  - DRUG TOLERANCE [None]
  - DRUG TOXICITY [None]
  - DYSPEPSIA [None]
  - FAECES HARD [None]
  - FLASHBACK [None]
  - INADEQUATE ANALGESIA [None]
  - INSOMNIA [None]
  - MOUTH CYST [None]
  - NIGHTMARE [None]
  - PAIN EXACERBATED [None]
  - PARAPLEGIA [None]
  - PHARYNGOLARYNGEAL PAIN [None]
  - POST-TRAUMATIC STRESS DISORDER [None]
  - PULMONARY CONGESTION [None]
  - PULMONARY OEDEMA [None]
  - SOMNOLENCE [None]
  - TOOTH IMPACTED [None]
